FAERS Safety Report 9173766 (Version 1)
Quarter: 2013Q1

REPORT INFORMATION
  Report Type: Spontaneous
  Country: FR (occurrence: None)
  Receive Date: 20130315
  Receipt Date: 20130315
  Transmission Date: 20140127
  Serious: Yes (Hospitalization)
  Sender: FDA-Public Use
  Company Number: DSM-2013-00329

PATIENT
  Age: 63 Year
  Sex: Female

DRUGS (7)
  1. ALTEIS (OLMESARTAN MEDOXOMIL) (TABLET) (OLMESARTAN MEDOXOMIL) [Suspect]
     Indication: HYPERTENSION
     Route: 048
     Dates: end: 20130112
  2. PLAVIX (CLOPIDOGREL SULFATE) (CLOPIDOGREL SULFATE) [Concomitant]
  3. CRESTOR (ROSUVASTATIN CALCIUM) (ROSUVASTATIN CALCIUM) [Concomitant]
  4. ATENOLOL (ATENOLOL) (ATENOLOL) [Concomitant]
  5. TEGRETOL (CARBAMAZEPINE) (CARBAMAZEPINE) [Concomitant]
  6. LAROXYL (AMITRIPTYLINE HYDROCHLORIDE) (AMITRIPTYLINE HYDROCHLORIDE) [Concomitant]
  7. XEROQUEL (QUETIAPINE) (QUETIAPINE) [Concomitant]

REACTIONS (4)
  - Orthostatic hypotension [None]
  - Hyponatraemia [None]
  - Hypotonia [None]
  - Malaise [None]
